FAERS Safety Report 9973045 (Version 2)
Quarter: 2014Q1

REPORT INFORMATION
  Report Type: Report from Study
  Country: PR (occurrence: PR)
  Receive Date: 20140306
  Receipt Date: 20140306
  Transmission Date: 20141002
  Serious: No
  Sender: FDA-Public Use
  Company Number: PR-ABBVIE-13P-131-1145593-00

PATIENT
  Age: 45 Year
  Sex: Female
  Weight: 73.55 kg

DRUGS (3)
  1. HUMIRA [Suspect]
     Indication: PSORIASIS
     Route: 058
     Dates: start: 2013, end: 201309
  2. HUMIRA [Suspect]
     Indication: ARTHRITIS
     Route: 058
     Dates: start: 201310
  3. METFORMIN [Concomitant]
     Indication: DIABETES MELLITUS
     Route: 048
     Dates: start: 2011

REACTIONS (10)
  - Platelet count increased [Unknown]
  - Bone pain [Recovered/Resolved]
  - Arthralgia [Unknown]
  - Nasopharyngitis [Recovered/Resolved]
  - Pharyngitis [Recovered/Resolved]
  - Pyrexia [Recovered/Resolved]
  - Viral infection [Recovered/Resolved]
  - Bronchitis [Unknown]
  - Cough [Not Recovered/Not Resolved]
  - Hypertension [Not Recovered/Not Resolved]
